FAERS Safety Report 5679849-3 (Version None)
Quarter: 2008Q1

REPORT INFORMATION
  Report Type: 
  Country: None (occurrence: None)
  Receive Date: 20080324
  Receipt Date: 20080307
  Transmission Date: 20080703
  Serious: Yes (Hospitalization, Other)
  Sender: FDA-Public Use
  Company Number: 230001J07FRA

PATIENT
  Age: 48 Year
  Sex: Female
  Weight: 61 kg

DRUGS (11)
  1. REBIF [Suspect]
     Indication: MULTIPLE SCLEROSIS
     Dosage: 55 MCG, 3 IN 1 WEEKS
  2. SULFARLEM (ANETHOLE TRITHIONE) [Concomitant]
  3. MOTILIUM [Concomitant]
  4. ZOLPIDEM [Concomitant]
  5. CLONAZEPAM [Concomitant]
  6. HEXAQUINE (HEXAQUINE) [Concomitant]
  7. DEXERYL [Concomitant]
  8. DIPROSONE [Concomitant]
  9. ESTRADIOL [Concomitant]
  10. NORGESTIMATE [Concomitant]
  11. PANTOPRAZOLE SODIUM [Concomitant]

REACTIONS (14)
  - ALOPECIA [None]
  - AUTOIMMUNE THYROIDITIS [None]
  - ERYTHEMA [None]
  - INJECTION SITE ATROPHY [None]
  - INJECTION SITE NECROSIS [None]
  - INJECTION SITE PAIN [None]
  - LICHENOID KERATOSIS [None]
  - NAIL INFECTION [None]
  - NECROSIS [None]
  - PRURITUS [None]
  - RASH PAPULAR [None]
  - SKIN DISCOLOURATION [None]
  - SKIN LESION [None]
  - SYSTEMIC LUPUS ERYTHEMATOSUS [None]
